FAERS Safety Report 9150195 (Version 4)
Quarter: 2013Q3

REPORT INFORMATION
  Report Type: Report from Study
  Country: JP (occurrence: JP)
  Receive Date: 20130308
  Receipt Date: 20130802
  Transmission Date: 20140515
  Serious: Yes (Hospitalization, Other)
  Sender: FDA-Public Use
  Company Number: JP-ABBOTT-13P-087-1056367-00

PATIENT
  Age: 71 Year
  Sex: Male
  Weight: 46.4 kg

DRUGS (15)
  1. HUMIRA [Suspect]
     Indication: RHEUMATOID ARTHRITIS
     Route: 058
     Dates: start: 20090617, end: 20101229
  2. HUMIRA [Suspect]
     Dates: start: 20110126, end: 20110907
  3. HUMIRA [Suspect]
     Dates: start: 20110929
  4. METHOTREXATE [Concomitant]
     Indication: RHEUMATOID ARTHRITIS
     Dates: end: 20090927
  5. METHOTREXATE [Concomitant]
     Dates: start: 20090928, end: 20110105
  6. METHOTREXATE [Concomitant]
     Dates: start: 20110126
  7. METHYLPREDNISOLONE [Concomitant]
     Indication: RHEUMATOID ARTHRITIS
     Route: 048
     Dates: end: 20110322
  8. METHYLPREDNISOLONE [Concomitant]
     Dates: start: 20110323
  9. ALFACALCIDOL [Concomitant]
     Indication: PRODUCT USED FOR UNKNOWN INDICATION
  10. MISOPROSTOL [Concomitant]
     Indication: PRODUCT USED FOR UNKNOWN INDICATION
  11. ISONIAZID [Concomitant]
     Indication: ANTIBIOTIC PROPHYLAXIS
  12. DIPYRIDAMOLE [Concomitant]
     Indication: PRODUCT USED FOR UNKNOWN INDICATION
  13. FEXOFENADINE [Concomitant]
     Indication: PRODUCT USED FOR UNKNOWN INDICATION
  14. ALENDRONATE SODIUM [Concomitant]
     Indication: PRODUCT USED FOR UNKNOWN INDICATION
     Dates: end: 20111018
  15. LAFUTIDINE [Concomitant]
     Indication: PRODUCT USED FOR UNKNOWN INDICATION
     Dates: start: 20100421

REACTIONS (7)
  - Computerised tomogram thorax abnormal [Unknown]
  - Pneumonia haemophilus [Recovered/Resolved]
  - Pneumonia bacterial [Recovered/Resolved]
  - Bronchitis [Recovered/Resolved]
  - Arthralgia [Unknown]
  - Headache [Unknown]
  - White blood cell count increased [Unknown]
